FAERS Safety Report 5018744-X (Version None)
Quarter: 2006Q2

REPORT INFORMATION
  Report Type: 
  Country: None (occurrence: None)
  Receive Date: 20060526
  Receipt Date: 20060510
  Transmission Date: 20061013
  Serious: Yes (Life-Threatening, Hospitalization, Other)
  Sender: FDA-Public Use
  Company Number: 200612315BWH

PATIENT
  Age: 74 Year
  Sex: Female
  Weight: 62.1428 kg

DRUGS (5)
  1. NEXAVAR [Suspect]
     Indication: RENAL CELL CARCINOMA STAGE UNSPECIFIED
     Dosage: SEE IMAGE
     Route: 048
     Dates: start: 20060113, end: 20060201
  2. NEXAVAR [Suspect]
     Indication: RENAL CELL CARCINOMA STAGE UNSPECIFIED
     Dosage: SEE IMAGE
     Route: 048
     Dates: start: 20060201, end: 20060301
  3. NEXAVAR [Suspect]
     Indication: RENAL CELL CARCINOMA STAGE UNSPECIFIED
     Dosage: SEE IMAGE
     Route: 048
     Dates: start: 20060329
  4. CLONIDINE [Concomitant]
  5. MONOPRIL [Concomitant]

REACTIONS (9)
  - CARDIAC ARREST [None]
  - CONDITION AGGRAVATED [None]
  - DIARRHOEA [None]
  - DIZZINESS [None]
  - HEART RATE DECREASED [None]
  - HYPERTENSION [None]
  - MIGRAINE [None]
  - PRURITUS GENERALISED [None]
  - SKIN EXFOLIATION [None]
